FAERS Safety Report 25487253 (Version 1)
Quarter: 2025Q2

REPORT INFORMATION
  Report Type: Spontaneous
  Country: IE (occurrence: IE)
  Receive Date: 20250627
  Receipt Date: 20250627
  Transmission Date: 20250716
  Serious: Yes (Hospitalization, Other)
  Sender: RANBAXY
  Company Number: IE-SUN PHARMACEUTICAL INDUSTRIES INC-2025R1-513702

PATIENT
  Age: 57 Year
  Sex: Female

DRUGS (2)
  1. LITHIUM [Suspect]
     Active Substance: LITHIUM
     Indication: Depression
     Route: 065
  2. FLUOXETINE [Concomitant]
     Active Substance: FLUOXETINE HYDROCHLORIDE
     Indication: Depression
     Route: 065

REACTIONS (5)
  - Neurotoxicity [Recovering/Resolving]
  - Hypovolaemia [Unknown]
  - Ataxia [Recovering/Resolving]
  - Myoclonus [Recovering/Resolving]
  - Renal impairment [Recovering/Resolving]
